FAERS Safety Report 15378772 (Version 1)
Quarter: 2018Q3

REPORT INFORMATION
  Report Type: Report from Study
  Country: US (occurrence: US)
  Receive Date: 20180913
  Receipt Date: 20180913
  Transmission Date: 20181010
  Serious: Yes (Death, Hospitalization)
  Sender: FDA-Public Use
  Company Number: US-PFIZER INC-2011033731

PATIENT
  Age: 78 Year
  Sex: Male
  Weight: 87.2 kg

DRUGS (9)
  1. DECADRON [Suspect]
     Active Substance: DEXAMETHASONE
     Dosage: UNK
     Dates: start: 20110124
  2. AMIODARONE [Concomitant]
     Active Substance: AMIODARONE
  3. METOPROLOL XL [Concomitant]
     Active Substance: METOPROLOL SUCCINATE
  4. FINASTERIDE. [Concomitant]
     Active Substance: FINASTERIDE
  5. PRILOSEC [Concomitant]
     Active Substance: OMEPRAZOLE MAGNESIUM
     Dosage: UNK
     Dates: start: 20110124
  6. LEVOTHYROXINE. [Concomitant]
     Active Substance: LEVOTHYROXINE
  7. PALBOCICLIB [Suspect]
     Active Substance: PALBOCICLIB
     Indication: GLIOBLASTOMA MULTIFORME
     Dosage: 125 MG, CYCLIC, 3 WKS ON/ 1 WK OFF
     Dates: start: 20110120
  8. LIPITOR [Concomitant]
     Active Substance: ATORVASTATIN CALCIUM
  9. KEPPRA [Concomitant]
     Active Substance: LEVETIRACETAM

REACTIONS (3)
  - Abdominal pain [Unknown]
  - Stomatitis [Unknown]
  - Lung infection [Fatal]

NARRATIVE: CASE EVENT DATE: 20110212
